FAERS Safety Report 20925469 (Version 6)
Quarter: 2023Q1

REPORT INFORMATION
  Report Type: Spontaneous
  Country: GB (occurrence: GB)
  Receive Date: 20220607
  Receipt Date: 20230215
  Transmission Date: 20230418
  Serious: Yes (Death, Hospitalization, Other)
  Sender: FDA-Public Use
  Company Number: GB-MYLANLABS-2022M1042304

PATIENT
  Age: 57 Year
  Sex: Male

DRUGS (2)
  1. CLOZARIL [Suspect]
     Active Substance: CLOZAPINE
     Indication: Schizophrenia
     Dosage: UNK
     Route: 048
     Dates: start: 20201203, end: 20210528
  2. CHLORPROMAZINE [Suspect]
     Active Substance: CHLORPROMAZINE
     Indication: Product used for unknown indication
     Dosage: UNK
     Route: 065

REACTIONS (13)
  - Disease progression [Fatal]
  - Hospitalisation [Unknown]
  - Dyspnoea [Unknown]
  - Pneumonia [Recovering/Resolving]
  - White blood cell count decreased [Recovered/Resolved]
  - Oxygen saturation decreased [Unknown]
  - Treatment noncompliance [Unknown]
  - Lymphocyte count decreased [Unknown]
  - Asthenia [Unknown]
  - Chronic disease [Unknown]
  - Angiopathy [Unknown]
  - Quality of life decreased [Unknown]
  - Off label use [Unknown]

NARRATIVE: CASE EVENT DATE: 20220531
